FAERS Safety Report 23669555 (Version 1)
Quarter: 2024Q1

REPORT INFORMATION
  Report Type: Spontaneous
  Country: US (occurrence: None)
  Receive Date: 20240324
  Receipt Date: 20240324
  Transmission Date: 20240410
  Serious: Yes (Disabling)
  Sender: FDA-Public Use
  Company Number: None

PATIENT
  Age: 49 Year
  Sex: Male
  Weight: 67.5 kg

DRUGS (1)
  1. MOUNJARO [Suspect]
     Active Substance: TIRZEPATIDE

REACTIONS (5)
  - Fatigue [None]
  - Asthenia [None]
  - Weight decreased [None]
  - Arthralgia [None]
  - Periarthritis [None]

NARRATIVE: CASE EVENT DATE: 20240101
